FAERS Safety Report 8597419-4 (Version None)
Quarter: 2012Q3

REPORT INFORMATION
  Report Type: 
  Country: None (occurrence: None)
  Receive Date: 20120816
  Receipt Date: 20120807
  Transmission Date: 20120928
  Serious: Yes (Hospitalization)
  Sender: FDA-Public Use
  Company Number: US-SANOFI-AVENTIS-2012SA047415

PATIENT
  Age: 50 Year
  Sex: Female
  Weight: 72.6 kg

DRUGS (19)
  1. TRASTUZUMAB [Suspect]
     Route: 042
     Dates: start: 20120228
  2. BLINDED THERAPY [Suspect]
     Route: 042
     Dates: start: 20120228
  3. CITALOPRAM [Concomitant]
     Route: 048
  4. SIMVASTATIN [Concomitant]
     Route: 048
  5. TRAMADOL HCL [Concomitant]
     Route: 048
  6. DOCETAXEL [Suspect]
     Route: 042
     Dates: start: 20120228
  7. ATROPINE SULFATE/DIPHENOXYLATE HYDROCHLORIDE [Concomitant]
  8. MECLIZINE [Concomitant]
     Route: 048
  9. PROCHLORPERAZINE MALEATE [Concomitant]
     Route: 048
  10. SPIRONOLACTONE [Concomitant]
     Route: 048
  11. CIPROFLOXACIN [Concomitant]
     Dosage: OPTHALMIC SOLUTION
     Route: 047
  12. LORAZEPAM [Concomitant]
     Route: 048
  13. MAGNESIUM OXIDE [Concomitant]
     Route: 048
  14. LOPERAMIDE [Concomitant]
     Route: 048
  15. PREDNISOLONE ACETATE [Concomitant]
  16. CARBOPLATIN [Suspect]
     Route: 042
     Dates: start: 20120228
  17. BLINDED THERAPY [Suspect]
     Route: 042
     Dates: start: 20120228
  18. DEXAMETHASONE [Concomitant]
     Route: 048
  19. OMEPRAZOLE [Concomitant]
     Route: 048

REACTIONS (4)
  - URINARY TRACT INFECTION [None]
  - HYPOKALAEMIA [None]
  - HYPONATRAEMIA [None]
  - ASTHENIA [None]
